FAERS Safety Report 11205152 (Version 3)
Quarter: 2017Q2

REPORT INFORMATION
  Report Type: Spontaneous
  Country: US (occurrence: US)
  Receive Date: 20150622
  Receipt Date: 20170412
  Transmission Date: 20170829
  Serious: Yes (Other)
  Sender: FDA-Public Use
  Company Number: US-JNJFOC-20150609692

PATIENT
  Sex: Male

DRUGS (4)
  1. IBUPROFEN. [Concomitant]
     Active Substance: IBUPROFEN
     Indication: NECK PAIN
     Route: 065
  2. RISPERDAL [Suspect]
     Active Substance: RISPERIDONE
     Indication: SCHIZOPHRENIA
     Dosage: ONCE OR TWICE DAILY
     Route: 048
     Dates: start: 2003, end: 2013
  3. IBUPROFEN. [Concomitant]
     Active Substance: IBUPROFEN
     Indication: BACK PAIN
     Route: 065
  4. VIOXX [Concomitant]
     Active Substance: ROFECOXIB
     Indication: ARTHRITIS
     Route: 065
     Dates: start: 2003, end: 2013

REACTIONS (6)
  - Intervertebral disc protrusion [Unknown]
  - Gynaecomastia [Not Recovered/Not Resolved]
  - Surgery [Unknown]
  - Accident at work [Unknown]
  - Adverse drug reaction [Unknown]
  - Spinal fracture [Unknown]
